FAERS Safety Report 5272446-3 (Version None)
Quarter: 2007Q1

REPORT INFORMATION
  Report Type: 
  Country: None (occurrence: None)
  Receive Date: 20070319
  Receipt Date: 20070302
  Transmission Date: 20070707
  Serious: Yes (Hospitalization, Other)
  Sender: FDA-Public Use
  Company Number: S06-USA-04450-01

PATIENT
  Age: 42 Year
  Sex: Male

DRUGS (5)
  1. CELEXA [Suspect]
     Indication: ANXIETY
     Dosage: 10 MG QD PO
     Route: 048
     Dates: start: 20060201, end: 20060701
  2. CELEXA [Suspect]
     Indication: ANXIETY
     Dosage: 10 MG QD PO
     Route: 048
     Dates: start: 20060701, end: 20070201
  3. ATENOLOL [Concomitant]
  4. IBUPROFEN [Concomitant]
  5. PAIN MEDICATIONS (NOS) [Concomitant]

REACTIONS (8)
  - ANXIETY [None]
  - BLOOD MAGNESIUM DECREASED [None]
  - BLOOD POTASSIUM DECREASED [None]
  - FATIGUE [None]
  - RENAL DISORDER [None]
  - RENAL FAILURE [None]
  - RENAL TUBULAR ACIDOSIS [None]
  - WEIGHT DECREASED [None]
